FAERS Safety Report 18001919 (Version 7)
Quarter: 2021Q3

REPORT INFORMATION
  Report Type: Report from Study
  Country: US (occurrence: US)
  Receive Date: 20200709
  Receipt Date: 20210714
  Transmission Date: 20211014
  Serious: Yes (Hospitalization)
  Sender: FDA-Public Use
  Company Number: US-ROCHE-2563039

PATIENT
  Age: 34 Year
  Sex: Male
  Weight: 69.8 kg

DRUGS (24)
  1. INFLUENZA VIRUS VACCINE [Suspect]
     Active Substance: INFLUENZA VIRUS VACCINE
     Indication: INFLUENZA IMMUNISATION
     Dosage: DATE OF MOST RECENT DOSE: 04/APR/2016 (0.5 ML)
     Route: 030
     Dates: start: 20160404
  2. HEPATITIS B VACCINE [Concomitant]
     Active Substance: HEPATITIS B VIRUS VACCINE
     Dates: start: 19990120
  3. PERTUSSIS VACCINE [Concomitant]
     Active Substance: PERTUSSIS VACCINE
     Dates: start: 19910821
  4. TETANUS TOXOID ADSORBED (VACCINE) [Concomitant]
     Active Substance: CLOSTRIDIUM TETANI TOXOID ANTIGEN (FORMALDEHYDE INACTIVATED)
     Dates: start: 19980717
  5. MUMPS VACCINE [Concomitant]
     Active Substance: MUMPS VIRUS STRAIN B LEVEL JERYL LYNN LIVE ANTIGEN
  6. ONDANSETRON [Concomitant]
     Active Substance: ONDANSETRON
     Indication: DIARRHOEA
     Route: 048
     Dates: start: 20171027, end: 20171101
  7. ONDANSETRON [Concomitant]
     Active Substance: ONDANSETRON
     Indication: NAUSEA
     Route: 048
     Dates: start: 20180321
  8. METHYLPREDNISOLONE. [Suspect]
     Active Substance: METHYLPREDNISOLONE
     Indication: PREMEDICATION
     Dosage: DATE OF MOST RECENT DOSE (100 MG) PRIOR TO EVENT ONSET: 21/AUG/2019
     Route: 042
     Dates: start: 20160527
  9. VITAMIN D3 [Concomitant]
     Active Substance: CHOLECALCIFEROL
     Route: 048
     Dates: start: 201304
  10. VORTIOXETINE. [Concomitant]
     Active Substance: VORTIOXETINE
     Route: 048
     Dates: start: 20190628
  11. ADDERALL [Concomitant]
     Active Substance: AMPHETAMINE ASPARTATE\AMPHETAMINE SULFATE\DEXTROAMPHETAMINE SACCHARATE\DEXTROAMPHETAMINE SULFATE
     Route: 048
     Dates: start: 20190110
  12. PNEUMOCOCCAL VACCINE POLYSACCH 23V [Suspect]
     Active Substance: PNEUMOCOCCAL VACCINE, POLYVALENT 23
     Indication: PNEUMOCOCCAL IMMUNISATION
     Dosage: DATE OF MOST RECENT DOSE: 04/APR/2016 (1 ML)
     Route: 030
     Dates: start: 20160404
  13. VORTIOXETINE. [Concomitant]
     Active Substance: VORTIOXETINE
     Indication: DEPRESSION
     Route: 048
     Dates: start: 20160810, end: 201706
  14. MEASLES [Concomitant]
     Dates: start: 19940622
  15. TETANUS TOXOID ADSORBED (VACCINE) [Suspect]
     Active Substance: CLOSTRIDIUM TETANI TOXOID ANTIGEN (FORMALDEHYDE INACTIVATED)
     Indication: IMMUNISATION
     Dosage: DATE OF MOST RECENT DOSE OF TETANUS AND DIPHTHERIA PRIOR TO EVENT ONSET: 10/SEP/2016?DATE OF MOST RE
     Route: 030
     Dates: start: 20160309
  16. AMPYRA [Concomitant]
     Active Substance: DALFAMPRIDINE
     Route: 048
     Dates: start: 20190214
  17. ERYTHROMYCIN. [Concomitant]
     Active Substance: ERYTHROMYCIN
     Indication: HORDEOLUM
     Dosage: OPTHALMIC
     Route: 061
     Dates: start: 20190805
  18. RUBELLA [Concomitant]
     Active Substance: RUBELLA VIRUS STRAIN WISTAR RA 27/3 LIVE ANTIGEN
     Dates: start: 19940622
  19. POLIOMYELITIS VACCINE NOS [Concomitant]
     Active Substance: POLIOMYELITIS VACCINE
     Dates: start: 19910821
  20. IMMUNOCYANINE [Suspect]
     Active Substance: KEYHOLE LIMPET HEMOCYANIN
     Indication: IMMUNE ENHANCEMENT THERAPY
     Dosage: AT 12 WEEKS PRIOR?OCRELIZUMAB TREATMENT UNTIL WEEK 24?MOST RECENT DOSE (1 MG) PRIOR TO EVENT ONSET:0
     Route: 058
     Dates: start: 20160309
  21. ADDERALL [Concomitant]
     Active Substance: AMPHETAMINE ASPARTATE\AMPHETAMINE SULFATE\DEXTROAMPHETAMINE SACCHARATE\DEXTROAMPHETAMINE SULFATE
     Indication: DISTURBANCE IN ATTENTION
     Route: 048
     Dates: start: 20181205, end: 20190110
  22. DIPHTHERIA TOXOID NOS [Concomitant]
     Active Substance: CORYNEBACTERIUM DIPHTHERIAE TOXOID ANTIGEN (FORMALDEHYDE INACTIVATED)
     Dates: start: 19980717
  23. OCRELIZUMAB. [Suspect]
     Active Substance: OCRELIZUMAB
     Indication: RELAPSING-REMITTING MULTIPLE SCLEROSIS
     Dosage: MOST RECENT DOSE (600 MG) PRIOR TO EVENT ONSET: 21/AUG/2019?DATE WHEN EVENT BECAME SERIOUS: /JAN/202
     Route: 042
     Dates: start: 20160527
  24. AMPYRA [Concomitant]
     Active Substance: DALFAMPRIDINE
     Route: 048
     Dates: start: 201510, end: 201706

REACTIONS (2)
  - Sepsis [Recovered/Resolved]
  - Gastroenteritis [Recovered/Resolved]

NARRATIVE: CASE EVENT DATE: 20200124
